FAERS Safety Report 4682925-5 (Version None)
Quarter: 2005Q2

REPORT INFORMATION
  Report Type: 
  Country: None (occurrence: None)
  Receive Date: 20050606
  Receipt Date: 20050526
  Transmission Date: 20051028
  Serious: Yes (Other)
  Sender: FDA-Public Use
  Company Number: JP-NOVOPROD-244498

PATIENT
  Age: 43 Year
  Sex: Female

DRUGS (2)
  1. GLUCAGON G NOVO [Suspect]
     Indication: X-RAY GASTROINTESTINAL TRACT
     Dosage: 1 MG, SINGLE
     Route: 030
     Dates: start: 20040714, end: 20040714
  2. DIOVANE [Concomitant]
     Dosage: 1 TAB, QD
     Route: 048

REACTIONS (5)
  - COLD SWEAT [None]
  - DEPRESSED LEVEL OF CONSCIOUSNESS [None]
  - MALAISE [None]
  - NAUSEA [None]
  - SHOCK [None]
